FAERS Safety Report 11359808 (Version 1)
Quarter: 2015Q3

REPORT INFORMATION
  Report Type: Spontaneous
  Country: GB (occurrence: GB)
  Receive Date: 20150809
  Receipt Date: 20150809
  Transmission Date: 20151125
  Serious: Yes (Other)
  Sender: FDA-Public Use
  Company Number: GB-CIPLA LTD.-2015GB06370

PATIENT

DRUGS (6)
  1. ABACAVIR. [Suspect]
     Active Substance: ABACAVIR
     Route: 064
  2. ZIDOVUDINE. [Suspect]
     Active Substance: ZIDOVUDINE
     Route: 064
  3. RITONAVIR. [Suspect]
     Active Substance: RITONAVIR
     Route: 064
  4. LAMIVUDINE. [Suspect]
     Active Substance: LAMIVUDINE
     Route: 064
  5. TENOFOVIR/EMTRICITABINE [Suspect]
     Active Substance: EMTRICITABINE\TENOFOVIR
     Route: 064
  6. LOPINAVIR [Suspect]
     Active Substance: LOPINAVIR
     Route: 064

REACTIONS (2)
  - Foetal exposure during pregnancy [Unknown]
  - HIV infection [Unknown]
